FAERS Safety Report 6019675-9 (Version None)
Quarter: 2008Q4

REPORT INFORMATION
  Report Type: 
  Country: None (occurrence: None)
  Receive Date: 20081224
  Receipt Date: 20081217
  Transmission Date: 20090506
  Serious: Yes (Death)
  Sender: FDA-Public Use
  Company Number: EC-AMGEN-US324733

PATIENT
  Age: 50 Year
  Sex: Male
  Weight: 68 kg

DRUGS (7)
  1. NEUPOGEN [Suspect]
     Indication: CHEMOTHERAPY
     Route: 058
     Dates: start: 20080603, end: 20081216
  2. VINCRISTINE [Concomitant]
     Route: 042
     Dates: start: 20080102, end: 20081209
  3. PREDNISONE [Concomitant]
     Route: 048
     Dates: start: 20080602, end: 20081219
  4. CYCLOPHOSPHAMIDE [Concomitant]
     Route: 042
     Dates: start: 20080602, end: 20081212
  5. RITUXIMAB [Concomitant]
     Route: 042
     Dates: start: 20080602, end: 20081212
  6. DOXORUBICIN HCL [Concomitant]
     Route: 042
     Dates: start: 20080602, end: 20081212
  7. KYTRIL [Concomitant]
     Route: 042
     Dates: start: 20080602, end: 20081212

REACTIONS (2)
  - DRUG INEFFECTIVE [None]
  - NEUTROPENIA [None]
